FAERS Safety Report 19249367 (Version 1)
Quarter: 2021Q2

REPORT INFORMATION
  Report Type: Other
  Country: FR (occurrence: FR)
  Receive Date: 20210512
  Receipt Date: 20210512
  Transmission Date: 20210717
  Serious: Yes (Other)
  Sender: FDA-Public Use
  Company Number: FR-ROCHE-2825273

PATIENT

DRUGS (1)
  1. TOCILIZUMAB. [Suspect]
     Active Substance: TOCILIZUMAB
     Indication: IMMUNE TOLERANCE INDUCTION
     Dosage: ON DAY 15 AND THEN MONTHLY FOR 6 MONTHS
     Route: 042

REACTIONS (1)
  - Intervertebral discitis [Unknown]
